FAERS Safety Report 16831912 (Version 1)
Quarter: 2019Q3

REPORT INFORMATION
  Report Type: Spontaneous
  Country: GB (occurrence: GB)
  Receive Date: 20190920
  Receipt Date: 20190920
  Transmission Date: 20191005
  Serious: Yes (Hospitalization, Other)
  Sender: FDA-Public Use
  Company Number: GB-TEVA-2019-GB-1109811

PATIENT
  Age: 87 Year
  Sex: Female

DRUGS (1)
  1. RALOXIFENE. [Suspect]
     Active Substance: RALOXIFENE
     Indication: OSTEOPOROTIC FRACTURE
     Dosage: TAKING FOR SEVERAL YEARS.60MG
     Route: 048

REACTIONS (5)
  - Dyspnoea [Unknown]
  - Femoral neck fracture [Unknown]
  - Treatment failure [Unknown]
  - Pulmonary embolism [Unknown]
  - Back pain [Unknown]
